FAERS Safety Report 18324654 (Version 1)
Quarter: 2020Q3

REPORT INFORMATION
  Report Type: Spontaneous
  Country: CN (occurrence: CN)
  Receive Date: 20200929
  Receipt Date: 20200929
  Transmission Date: 20201103
  Serious: Yes (Hospitalization)
  Sender: FDA-Public Use
  Company Number: CN-PFIZER INC-2020373084

PATIENT
  Age: 54 Year
  Sex: Female
  Weight: 52 kg

DRUGS (1)
  1. CELECOXIB. [Suspect]
     Active Substance: CELECOXIB
     Indication: ANALGESIC THERAPY
     Dosage: 0.2 G, 2X/DAY
     Route: 048
     Dates: start: 20200905, end: 20200911

REACTIONS (2)
  - Oedema [Recovered/Resolved]
  - Erythema [Recovered/Resolved]

NARRATIVE: CASE EVENT DATE: 20200911
